FAERS Safety Report 6769990-6 (Version None)
Quarter: 2010Q2

REPORT INFORMATION
  Report Type: 
  Country: None (occurrence: None)
  Receive Date: 20100615
  Receipt Date: 20100607
  Transmission Date: 20101027
  Serious: Yes (Hospitalization)
  Sender: FDA-Public Use
  Company Number: DE-WYE-G06233410

PATIENT
  Age: 57 Year
  Sex: Male
  Weight: 71.1 kg

DRUGS (3)
  1. VENLAFAXINE HCL [Suspect]
     Route: 048
     Dates: start: 20100316, end: 20100325
  2. VENLAFAXINE HCL [Interacting]
     Route: 048
     Dates: start: 20100326, end: 20100327
  3. MIRTAZAPINE [Interacting]
     Dosage: FOR MONTHS TO 24-MAR-2010 45MG/DAY,THEN 30MG/DAY TO 19-APR-2010,THEN 15MG/DAY TILL 26-APR-2010
     Route: 048

REACTIONS (6)
  - DELUSION [None]
  - DEPRESSION [None]
  - DRUG INTERACTION [None]
  - FEELING HOT [None]
  - HYPOCHONDRIASIS [None]
  - PARAESTHESIA [None]
